FAERS Safety Report 16394076 (Version 1)
Quarter: 2019Q3

REPORT INFORMATION
  Report Type: Spontaneous
  Country: US (occurrence: US)
  Receive Date: 20190603
  Receipt Date: 20190603
  Transmission Date: 20191004
  Serious: Yes (Disabling)
  Sender: FDA-Public Use
  Company Number: None

PATIENT
  Age: 63 Year
  Sex: Female
  Weight: 61.65 kg

DRUGS (1)
  1. PROLIA [Suspect]
     Active Substance: DENOSUMAB
     Indication: OSTEOPOROSIS
     Dosage: ?          OTHER FREQUENCY:INJECTION 6 MONTHS;OTHER ROUTE:INFUSION?
     Dates: start: 20190412, end: 20190412

REACTIONS (23)
  - Vertigo [None]
  - Dizziness [None]
  - Pain [None]
  - Sciatica [None]
  - Muscle tightness [None]
  - Nausea [None]
  - Fatigue [None]
  - Myalgia [None]
  - Bone pain [None]
  - Hypertension [None]
  - Dyspepsia [None]
  - Medial tibial stress syndrome [None]
  - Immobile [None]
  - Apathy [None]
  - Rhinorrhoea [None]
  - Dysphagia [None]
  - Malaise [None]
  - Depression [None]
  - Gastrooesophageal reflux disease [None]
  - Staphylococcal infection [None]
  - Flank pain [None]
  - Painful respiration [None]
  - Vision blurred [None]

NARRATIVE: CASE EVENT DATE: 20190426
